FAERS Safety Report 9180832 (Version 1)
Quarter: 2013Q1

REPORT INFORMATION
  Report Type: Report from Study
  Country: US (occurrence: US)
  Receive Date: 20130322
  Receipt Date: 20130322
  Transmission Date: 20140127
  Serious: Yes (Other)
  Sender: FDA-Public Use
  Company Number: US-JNJFOC-20130310042

PATIENT
  Age: 25 Year
  Sex: 0

DRUGS (1)
  1. REMICADE [Suspect]
     Indication: CROHN^S DISEASE
     Route: 042
     Dates: start: 2012

REACTIONS (7)
  - Memory impairment [Unknown]
  - Drug effect decreased [Unknown]
  - Intestinal stenosis [Unknown]
  - Feeling abnormal [Unknown]
  - Gastrointestinal sounds abnormal [Unknown]
  - Dry skin [Unknown]
  - Fatigue [Unknown]
